FAERS Safety Report 14420945 (Version 1)
Quarter: 2018Q1

REPORT INFORMATION
  Report Type: Spontaneous
  Country: US (occurrence: US)
  Receive Date: 20180122
  Receipt Date: 20180122
  Transmission Date: 20180509
  Serious: No
  Sender: FDA-Public Use
  Company Number: US-ROCHE-2014653

PATIENT
  Sex: Male
  Weight: 102.15 kg

DRUGS (5)
  1. RITUXAN [Suspect]
     Active Substance: RITUXIMAB
     Indication: PEMPHIGUS
     Route: 042
  2. PEPCID (UNITED STATES) [Concomitant]
     Indication: PREMEDICATION
     Dosage: TAKEN FOR 3 DAYS PRIOR TO INFUSION
     Route: 048
  3. PREDNISONE. [Concomitant]
     Active Substance: PREDNISONE
     Dosage: TAKEN FOR 3 DAYS PRIOR TO INFUSION
     Route: 065
  4. CRESTOR [Concomitant]
     Active Substance: ROSUVASTATIN CALCIUM
     Route: 048
  5. XANAX [Concomitant]
     Active Substance: ALPRAZOLAM
     Route: 048

REACTIONS (3)
  - Urticaria [Recovered/Resolved]
  - Intentional product use issue [Unknown]
  - Off label use [Unknown]
